FAERS Safety Report 6240362-6 (Version None)
Quarter: 2009Q2

REPORT INFORMATION
  Report Type: 
  Country: None (occurrence: None)
  Receive Date: 20090623
  Receipt Date: 20080825
  Transmission Date: 20091009
  Serious: No
  Sender: FDA-Public Use
  Company Number: US-ASTRAZENECA-2008UW17425

PATIENT
  Age: 69 Year
  Sex: Female
  Weight: 54.4 kg

DRUGS (4)
  1. PULMICORT FLEXHALER [Suspect]
     Indication: ASTHMA
     Dosage: 2 INHALATIONS
     Route: 055
  2. AMLODIPINE [Concomitant]
  3. COREG [Concomitant]
  4. LEVOTHYROXINE SODIUM [Concomitant]

REACTIONS (2)
  - ASTHMA [None]
  - DYSPNOEA [None]
